FAERS Safety Report 6438696-5 (Version None)
Quarter: 2009Q4

REPORT INFORMATION
  Report Type: 
  Country: None (occurrence: None)
  Receive Date: 20091113
  Receipt Date: 20091104
  Transmission Date: 20100525
  Serious: Yes (Hospitalization)
  Sender: FDA-Public Use
  Company Number: US-BIOGENIDEC-2008BI011274

PATIENT
  Age: 58 Year
  Sex: Female

DRUGS (3)
  1. AVONEX [Suspect]
     Indication: MULTIPLE SCLEROSIS
     Route: 030
     Dates: start: 20030901
  2. AVONEX [Suspect]
     Route: 030
     Dates: start: 20030901
  3. AVONEX [Suspect]
     Route: 030
     Dates: start: 20000801, end: 20030801

REACTIONS (3)
  - COLON CANCER [None]
  - COLON CANCER RECURRENT [None]
  - PNEUMONIA [None]
